FAERS Safety Report 11349223 (Version 1)
Quarter: 2015Q3

REPORT INFORMATION
  Report Type: Spontaneous
  Country: KR (occurrence: None)
  Receive Date: 20150805
  Receipt Date: 20150805
  Transmission Date: 20151125
  Serious: Yes (Death, Hospitalization)
  Sender: FDA-Public Use
  Company Number: UCM201507-000527

PATIENT
  Age: 33 Year
  Sex: Male

DRUGS (3)
  1. LAMOTRIGINE (LAMOTRIGINE) (LAMOTRIGINE) [Suspect]
     Active Substance: LAMOTRIGINE
     Indication: EPILEPSY
  2. DIVIALPROEX SODIUM (DIVALPROEX SODIUM) (DIVALOPROEX SODIUM) [Suspect]
     Active Substance: DIVALPROEX SODIUM
     Indication: EPILEPSY
  3. ARIPIPRAZOLE. [Concomitant]
     Active Substance: ARIPIPRAZOLE

REACTIONS (6)
  - Stevens-Johnson syndrome [None]
  - Drug interaction [None]
  - Hepatic encephalopathy [None]
  - Hepatic failure [None]
  - Coagulopathy [None]
  - Drug ineffective [None]
